FAERS Safety Report 9093195 (Version 1)
Quarter: 2013Q1

REPORT INFORMATION
  Report Type: Report from Study
  Country: US (occurrence: US)
  Receive Date: 20130131
  Receipt Date: 20130131
  Transmission Date: 20140127
  Serious: No
  Sender: FDA-Public Use
  Company Number: US-ABBOTT-12P-163-1002893-00

PATIENT
  Age: 55 Year
  Sex: Male

DRUGS (6)
  1. HUMIRA [Suspect]
     Indication: PSORIASIS
     Dates: start: 20121017
  2. HUMIRA [Suspect]
     Dosage: 1 DAY LATE
     Dates: start: 20121025
  3. HCTZ [Concomitant]
     Indication: CARDIAC DISORDER
     Route: 048
  4. HCTZ [Concomitant]
     Indication: HYPERTENSION
  5. LOSARTAN [Concomitant]
     Indication: HYPERTENSION
     Route: 048
  6. APPLE CIDER VINEGAR TABLETS [Concomitant]
     Indication: MUSCLE SPASMS
     Route: 048

REACTIONS (1)
  - Pruritus [Not Recovered/Not Resolved]
